FAERS Safety Report 10095563 (Version 1)
Quarter: 2014Q2

REPORT INFORMATION
  Report Type: Report from Study
  Country: US (occurrence: US)
  Receive Date: 20140422
  Receipt Date: 20140422
  Transmission Date: 20141212
  Serious: Yes (Hospitalization, Other)
  Sender: FDA-Public Use
  Company Number: US-ACTELION-A-NJ2014-97329

PATIENT
  Age: 2 Year
  Sex: Female

DRUGS (3)
  1. TRACLEER [Suspect]
     Indication: PULMONARY HYPERTENSION
     Dosage: 12 MG, Q12HRS
     Route: 048
  2. SILDENAFIL [Concomitant]
     Dosage: 6.6 MG, Q8HRS
  3. CHLOROTHIAZIDE [Concomitant]
     Dosage: 130 MG, Q12HRS

REACTIONS (5)
  - Liver abscess [Recovered/Resolved]
  - Clostridium difficile colitis [Recovered/Resolved]
  - Failure to thrive [Recovered/Resolved]
  - Weight decreased [Recovering/Resolving]
  - Pericardial effusion [Unknown]
